FAERS Safety Report 14609683 (Version 2)
Quarter: 2018Q2

REPORT INFORMATION
  Report Type: Report from Study
  Country: US (occurrence: US)
  Receive Date: 20180307
  Receipt Date: 20180413
  Transmission Date: 20180711
  Serious: No
  Sender: FDA-Public Use
  Company Number: PHEH2018US009043

PATIENT
  Sex: Female

DRUGS (4)
  1. GILENYA [Suspect]
     Active Substance: FINGOLIMOD HYDROCHLORIDE
     Indication: MULTIPLE SCLEROSIS
     Dosage: 0.5 MG, QD (STARTED ONE MONTH AGO)
     Route: 048
  2. TECFIDERA [Suspect]
     Active Substance: DIMETHYL FUMARATE
     Indication: GASTROINTESTINAL DISORDER
     Route: 065
  3. ALLEGRA [Concomitant]
     Active Substance: FEXOFENADINE HYDROCHLORIDE
     Indication: PRODUCT USED FOR UNKNOWN INDICATION
     Route: 065
  4. SYNTHROID [Concomitant]
     Active Substance: LEVOTHYROXINE SODIUM
     Indication: PRODUCT USED FOR UNKNOWN INDICATION
     Route: 065

REACTIONS (3)
  - Asthenia [Not Recovered/Not Resolved]
  - Memory impairment [Not Recovered/Not Resolved]
  - Concomitant disease aggravated [Not Recovered/Not Resolved]
